APPROVED DRUG PRODUCT: REMODULIN
Active Ingredient: TREPROSTINIL
Strength: 200MG/20ML (10MG/ML)
Dosage Form/Route: SOLUTION;INTRAVENOUS, SUBCUTANEOUS
Application: N208276 | Product #004
Applicant: UNITED THERAPEUTICS CORP
Approved: Jul 30, 2018 | RLD: No | RS: No | Type: DISCN

PATENTS:
Patent 9593066 | Expires: Dec 15, 2028